FAERS Safety Report 7425629-8 (Version None)
Quarter: 2011Q2

REPORT INFORMATION
  Report Type: 
  Country: None (occurrence: None)
  Receive Date: 20110414
  Receipt Date: 20110404
  Transmission Date: 20111010
  Serious: Yes (Death)
  Sender: FDA-Public Use
  Company Number: IPC201104-000555

PATIENT
  Sex: Male

DRUGS (6)
  1. METOCLOPRAMIDE [Suspect]
     Indication: ABDOMINAL DISTENSION
     Dosage: ORAL,  SYRUP, ORAL
     Route: 048
     Dates: start: 20081101, end: 20090326
  2. METOCLOPRAMIDE [Suspect]
     Indication: DYSPEPSIA
     Dosage: ORAL,  SYRUP, ORAL
     Route: 048
     Dates: start: 20081101, end: 20090326
  3. METOCLOPRAMIDE [Suspect]
     Indication: IMPAIRED GASTRIC EMPTYING
     Dosage: ORAL,  SYRUP, ORAL
     Route: 048
     Dates: start: 20081101, end: 20090326
  4. METOCLOPRAMIDE [Suspect]
     Indication: ABDOMINAL DISTENSION
     Dosage: ORAL,  SYRUP, ORAL
     Route: 048
     Dates: start: 20081101, end: 20090326
  5. METOCLOPRAMIDE [Suspect]
     Indication: DYSPEPSIA
     Dosage: ORAL,  SYRUP, ORAL
     Route: 048
     Dates: start: 20081101, end: 20090326
  6. METOCLOPRAMIDE [Suspect]
     Indication: IMPAIRED GASTRIC EMPTYING
     Dosage: ORAL,  SYRUP, ORAL
     Route: 048
     Dates: start: 20081101, end: 20090326

REACTIONS (3)
  - EXTRAPYRAMIDAL DISORDER [None]
  - TARDIVE DYSKINESIA [None]
  - AKATHISIA [None]
